FAERS Safety Report 11169490 (Version 1)
Quarter: 2015Q2

REPORT INFORMATION
  Report Type: Spontaneous
  Country: US (occurrence: US)
  Receive Date: 20150605
  Receipt Date: 20150605
  Transmission Date: 20150821
  Serious: No
  Sender: FDA-Public Use
  Company Number: US-009507513-1505USA015676

PATIENT

DRUGS (1)
  1. RAGWITEK [Suspect]
     Active Substance: AMBROSIA ARTEMISIIFOLIA POLLEN
     Dosage: 12 AMB A1-U
     Route: 048
     Dates: start: 20150519

REACTIONS (5)
  - Swollen tongue [Not Recovered/Not Resolved]
  - Throat irritation [Unknown]
  - Oropharyngeal pain [Unknown]
  - Oral pruritus [Unknown]
  - Ear pruritus [Unknown]

NARRATIVE: CASE EVENT DATE: 20150519
